FAERS Safety Report 6106058-6 (Version None)
Quarter: 2009Q1

REPORT INFORMATION
  Report Type: 
  Country: None (occurrence: None)
  Receive Date: 20090306
  Receipt Date: 20090225
  Transmission Date: 20090719
  Serious: Yes (Death, Life-Threatening, Hospitalization)
  Sender: FDA-Public Use
  Company Number: DE-WYE-H08404009

PATIENT
  Age: 71 Year
  Sex: Male

DRUGS (12)
  1. AMIODARONE HCL [Suspect]
     Indication: TACHYARRHYTHMIA
     Route: 048
     Dates: start: 20070101
  2. ACTRAPID HUMAN [Concomitant]
     Indication: TYPE 2 DIABETES MELLITUS
     Dosage: UNKNOWN
     Route: 058
  3. ALLOPURINOL [Concomitant]
     Indication: HYPERURICAEMIA
     Route: 048
  4. DIAZEPAM [Concomitant]
     Indication: ANXIETY
     Route: 048
  5. VIANI [Concomitant]
     Indication: CHRONIC OBSTRUCTIVE PULMONARY DISEASE
     Dosage: 50 UG + 250 UG TWICE DAILY
     Route: 055
  6. FLUVASTATIN [Concomitant]
     Indication: HYPERLIPIDAEMIA
     Route: 048
  7. PANTOZOL [Concomitant]
     Indication: PROPHYLAXIS AGAINST GASTROINTESTINAL ULCER
     Route: 048
  8. ISOPHANE INSULIN [Concomitant]
     Indication: TYPE 2 DIABETES MELLITUS
     Route: 058
  9. SPIRIVA [Concomitant]
     Indication: CHRONIC OBSTRUCTIVE PULMONARY DISEASE
     Route: 055
  10. TORSEMIDE [Concomitant]
     Indication: HYPERTENSION
     Dosage: 10-5-0 MG
     Route: 048
     Dates: start: 20061201
  11. DIGITOXIN [Suspect]
     Indication: TACHYARRHYTHMIA
     Route: 048
     Dates: start: 20070101
  12. DIOVAN [Concomitant]
     Indication: HYPERTENSION
     Route: 048

REACTIONS (2)
  - ATRIOVENTRICULAR BLOCK COMPLETE [None]
  - BRADYARRHYTHMIA [None]
